FAERS Safety Report 5673275-9 (Version None)
Quarter: 2008Q1

REPORT INFORMATION
  Report Type: 
  Country: None (occurrence: None)
  Receive Date: 20080319
  Receipt Date: 20080314
  Transmission Date: 20080703
  Serious: Yes (Hospitalization)
  Sender: FDA-Public Use
  Company Number: JP-ASTRAZENECA-2008AP01381

PATIENT
  Age: 28145 Day
  Sex: Male
  Weight: 53 kg

DRUGS (2)
  1. IRESSA [Suspect]
     Indication: LUNG ADENOCARCINOMA
     Route: 048
     Dates: start: 20080208, end: 20080218
  2. LENDORMIN [Concomitant]
     Route: 048
     Dates: start: 20080116

REACTIONS (2)
  - PNEUMONIA [None]
  - STOMATITIS [None]
